FAERS Safety Report 9736964 (Version 1)
Quarter: 2013Q4

REPORT INFORMATION
  Report Type: Report from Study
  Country: VE (occurrence: VE)
  Receive Date: 20131206
  Receipt Date: 20131206
  Transmission Date: 20140711
  Serious: Yes (Death)
  Sender: FDA-Public Use
  Company Number: PHHY2013VE142128

PATIENT
  Age: 81 Year
  Sex: Female

DRUGS (2)
  1. ACLASTA [Suspect]
     Indication: OSTEOPOROSIS
     Dosage: 5 MG, ANNUALLY
     Route: 042
     Dates: start: 20090115
  2. ACLASTA [Suspect]
     Dosage: 5 MG, ANNUALLY
     Route: 042
     Dates: start: 201205

REACTIONS (2)
  - Paralysis [Fatal]
  - Abasia [Fatal]
